FAERS Safety Report 14560160 (Version 1)
Quarter: 2018Q1

REPORT INFORMATION
  Report Type: Report from Study
  Country: US (occurrence: US)
  Receive Date: 20180222
  Receipt Date: 20180222
  Transmission Date: 20180509
  Serious: Yes (Life-Threatening)
  Sender: FDA-Public Use
  Company Number: PHEH2018US005855

PATIENT
  Sex: Male

DRUGS (1)
  1. TOBI [Suspect]
     Active Substance: TOBRAMYCIN
     Indication: PRODUCT USED FOR UNKNOWN INDICATION
     Dosage: UNK UNK, BID
     Route: 055

REACTIONS (6)
  - Dyspnoea [Unknown]
  - Rhinorrhoea [Unknown]
  - General physical condition abnormal [Unknown]
  - Ocular hyperaemia [Unknown]
  - Eye swelling [Unknown]
  - Pain [Unknown]
